FAERS Safety Report 4929700-1 (Version None)
Quarter: 2006Q1

REPORT INFORMATION
  Report Type: 
  Country: None (occurrence: None)
  Receive Date: 20060301
  Receipt Date: 20050614
  Transmission Date: 20060701
  Serious: Yes (Hospitalization)
  Sender: FDA-Public Use
  Company Number: US-MERCK-0506USA02208

PATIENT
  Age: 76 Year
  Sex: Female

DRUGS (15)
  1. VIOXX [Suspect]
     Indication: PAIN
     Route: 048
     Dates: start: 20010501
  2. VIOXX [Suspect]
     Route: 048
  3. ACTOS [Concomitant]
     Route: 048
  4. GLUCOTROL XL [Concomitant]
     Route: 048
  5. PRINIVIL [Concomitant]
     Route: 048
  6. LIPITOR [Concomitant]
     Route: 048
  7. SYNTHROID [Concomitant]
     Route: 048
  8. SYNTHROID [Concomitant]
     Route: 048
  9. CYANOCOBALAMIN [Concomitant]
     Route: 051
  10. MICRO-K [Concomitant]
     Route: 048
  11. LASIX [Concomitant]
     Route: 048
  12. VITAMINS (UNSPECIFIED) [Concomitant]
     Route: 048
  13. VITAMIN E [Concomitant]
     Route: 048
  14. ASPIRIN [Concomitant]
     Route: 048
  15. NEURONTIN [Concomitant]
     Route: 048

REACTIONS (2)
  - CHEST PAIN [None]
  - PULMONARY EMBOLISM [None]
